FAERS Safety Report 4488545-X (Version None)
Quarter: 2004Q4

REPORT INFORMATION
  Report Type: 
  Country: None (occurrence: None)
  Receive Date: 20041028
  Receipt Date: 20041028
  Transmission Date: 20050328
  Serious: Yes (Other)
  Sender: FDA-Public Use
  Company Number: None

PATIENT
  Age: 78 Year
  Sex: Male
  Weight: 70.3075 kg

DRUGS (5)
  1. VIOXX [Suspect]
     Indication: ARTHRITIS
     Dosage: 25 MG EACH DAY
     Dates: start: 20031128, end: 20040324
  2. NEXIUM [Concomitant]
  3. DETROL [Concomitant]
  4. FLOMAX [Concomitant]
  5. ASPIRIN [Concomitant]

REACTIONS (1)
  - BLOOD PRESSURE SYSTOLIC INCREASED [None]
